FAERS Safety Report 6169347-5 (Version None)
Quarter: 2009Q2

REPORT INFORMATION
  Report Type: 
  Country: None (occurrence: None)
  Receive Date: 20090427
  Receipt Date: 20090422
  Transmission Date: 20091009
  Serious: No
  Sender: FDA-Public Use
  Company Number: US-B.I. PHARMACEUTICALS,INC./RIDGEFIELD-2009-BP-05163BP

PATIENT
  Sex: Male

DRUGS (2)
  1. ZANTAC 150 [Suspect]
     Indication: DYSPEPSIA
     Dosage: 300MG
     Route: 048
     Dates: start: 20070101, end: 20090420
  2. NEXIUM [Concomitant]
     Indication: DYSPEPSIA
     Dosage: 40MG
     Route: 048
     Dates: start: 20060101

REACTIONS (1)
  - NOCTURIA [None]
